FAERS Safety Report 7790978-0 (Version None)
Quarter: 2011Q4

REPORT INFORMATION
  Report Type: 
  Country: None (occurrence: None)
  Receive Date: 20111002
  Receipt Date: 20110923
  Transmission Date: 20120403
  Serious: Yes (Other)
  Sender: FDA-Public Use
  Company Number: PHEH2011US00446

PATIENT
  Sex: Male

DRUGS (5)
  1. PALONOSETRON [Concomitant]
  2. DEXAMETHASONE [Concomitant]
  3. ZOMETA [Suspect]
  4. RANITIDINE [Concomitant]
  5. VIAGRA [Concomitant]
     Dosage: UNK

REACTIONS (14)
  - ANXIETY [None]
  - NEUROPATHY PERIPHERAL [None]
  - NEUTROPENIA [None]
  - CONSTIPATION [None]
  - BONE PAIN [None]
  - OSTEOSCLEROSIS [None]
  - OSTEONECROSIS OF JAW [None]
  - DISABILITY [None]
  - DECREASED INTEREST [None]
  - PROSTATE CANCER METASTATIC [None]
  - INJURY [None]
  - PAIN [None]
  - VARICELLA [None]
  - HYPERTENSION [None]
